FAERS Safety Report 11433984 (Version 1)
Quarter: 2015Q3

REPORT INFORMATION
  Report Type: Spontaneous
  Country: US (occurrence: None)
  Receive Date: 20150828
  Receipt Date: 20150828
  Transmission Date: 20151125
  Serious: Yes (Other)
  Sender: FDA-Public Use
  Company Number: None

PATIENT
  Age: 67 Year
  Sex: Male

DRUGS (1)
  1. XELODA [Suspect]
     Active Substance: CAPECITABINE

REACTIONS (4)
  - Asthenia [None]
  - Balance disorder [None]
  - Aphasia [None]
  - Platelet count decreased [None]

NARRATIVE: CASE EVENT DATE: 20150826
